FAERS Safety Report 9406143 (Version 4)
Quarter: 2013Q3

REPORT INFORMATION
  Report Type: Spontaneous
  Country: US (occurrence: US)
  Receive Date: 20130717
  Receipt Date: 20130908
  Transmission Date: 20140515
  Serious: Yes (Death, Hospitalization, Other)
  Sender: FDA-Public Use
  Company Number: US-BAXTER-2013BAX027008

PATIENT
  Age: 52 Year
  Sex: Female

DRUGS (3)
  1. DIANEAL LOW CALCIUM [Suspect]
     Indication: PERITONEAL DIALYSIS
     Route: 033
     Dates: start: 2012
  2. DIANEAL LOW CALCIUM [Suspect]
     Indication: PERITONEAL DIALYSIS
     Route: 033
     Dates: start: 2012
  3. EXTRANEAL [Suspect]
     Indication: PERITONEAL DIALYSIS
     Route: 033
     Dates: start: 2012

REACTIONS (12)
  - Asphyxia [Fatal]
  - Pneumonia [Fatal]
  - Diabetic coma [Unknown]
  - Blood insulin increased [Unknown]
  - Glaucoma [Unknown]
  - Mitral valve incompetence [Unknown]
  - Cardiovascular disorder [Unknown]
  - Fluid retention [Recovering/Resolving]
  - Device interaction [Unknown]
  - Thyroid disorder [Unknown]
  - Hypoglycaemia [Unknown]
  - Brain injury [Unknown]
